FAERS Safety Report 8730270 (Version 2)
Quarter: 2012Q4

REPORT INFORMATION
  Report Type: 
  Country: US (occurrence: US)
  Receive Date: 20120817
  Receipt Date: 20120831
  Transmission Date: 20130627
  Serious: No
  Sender: FDA-Public Use
  Company Number: US-PFIZER INC-2012197770

PATIENT
  Age: 83 Year
  Sex: Male
  Weight: 69.84 kg

DRUGS (8)
  1. REVATIO [Suspect]
     Indication: PULMONARY HYPERTENSION
     Dosage: 20 mg, 3x/day
     Route: 048
  2. BUPROPION [Concomitant]
     Indication: ANXIETY
     Dosage: 300 mg, 1x/day
  3. FUROSEMIDE [Concomitant]
     Indication: OEDEMA
     Dosage: 40 mg, 1x/day
  4. SINGULAIR [Concomitant]
     Indication: CHRONIC OBSTRUCTIVE PULMONARY DISEASE
     Dosage: 10 mg, 1x/day
  5. BUDESONIDE [Concomitant]
     Indication: CHRONIC OBSTRUCTIVE PULMONARY DISEASE
     Dosage: UNK, 2x/day
  6. BROVANA [Concomitant]
     Indication: CHRONIC OBSTRUCTIVE PULMONARY DISEASE
     Dosage: UNK, 2x/day
  7. HYDROCODONE/IBUPROFEN [Concomitant]
     Indication: PAIN
     Dosage: 7.5/200 mg, 2x/day
     Route: 048
  8. COUMADINE [Concomitant]
     Dosage: UNK

REACTIONS (1)
  - International normalised ratio abnormal [Unknown]
